FAERS Safety Report 17121361 (Version 1)
Quarter: 2019Q4

REPORT INFORMATION
  Report Type: Spontaneous
  Country: US (occurrence: US)
  Receive Date: 20191206
  Receipt Date: 20191206
  Transmission Date: 20200122
  Serious: No
  Sender: FDA-Public Use
  Company Number: US-MYLANLABS-2019M1115795

PATIENT
  Sex: Female
  Weight: 59 kg

DRUGS (1)
  1. NITROGLYCERIN TRANSDERMAL DELIVERY SYSTEM [Suspect]
     Active Substance: NITROGLYCERIN
     Indication: ANGINA PECTORIS
     Dosage: 1 DOSAGE FORM,12 HRS ON 12 HRS OFF

REACTIONS (4)
  - Application site urticaria [Not Recovered/Not Resolved]
  - Application site pain [Not Recovered/Not Resolved]
  - Application site pruritus [Not Recovered/Not Resolved]
  - Tremor [Not Recovered/Not Resolved]
